FAERS Safety Report 6921797-2 (Version None)
Quarter: 2010Q3

REPORT INFORMATION
  Report Type: 
  Country: None (occurrence: None)
  Receive Date: 20100812
  Receipt Date: 20100809
  Transmission Date: 20110219
  Serious: Yes (Hospitalization)
  Sender: FDA-Public Use
  Company Number: IT-TEVA-244144ISR

PATIENT
  Age: 11 Month
  Sex: Male

DRUGS (3)
  1. DOXORUBICIN HCL [Suspect]
     Indication: NEPHROBLASTOMA
  2. VINCRISTINE [Suspect]
     Indication: NEPHROBLASTOMA
  3. DACTINOMYCIN [Suspect]
     Indication: NEPHROBLASTOMA

REACTIONS (8)
  - DISSEMINATED INTRAVASCULAR COAGULATION [None]
  - HAEMOGLOBIN DECREASED [None]
  - HEPATIC VEIN OCCLUSION [None]
  - PALLOR [None]
  - PYREXIA [None]
  - TACHYCARDIA [None]
  - TACHYPNOEA [None]
  - VENOOCCLUSIVE LIVER DISEASE [None]
